FAERS Safety Report 5097036-7 (Version None)
Quarter: 2006Q3

REPORT INFORMATION
  Report Type: 
  Country: None (occurrence: None)
  Receive Date: 20060901
  Receipt Date: 20060814
  Transmission Date: 20061208
  Serious: Yes (Other)
  Sender: FDA-Public Use
  Company Number: US200608003105

PATIENT
  Sex: Female

DRUGS (2)
  1. EVISTA [Suspect]
     Indication: OSTEOPOROSIS
     Dosage: 60 MG ORAL
     Route: 048
     Dates: start: 19980101
  2. VITAMINS MINERALS THERAPEUTIC [Concomitant]

REACTIONS (2)
  - DEAFNESS UNILATERAL [None]
  - PHARMACEUTICAL PRODUCT COMPLAINT [None]
